FAERS Safety Report 14039249 (Version 1)
Quarter: 2017Q4

REPORT INFORMATION
  Report Type: Spontaneous
  Country: US (occurrence: US)
  Receive Date: 20171004
  Receipt Date: 20171004
  Transmission Date: 20180321
  Serious: Yes (Other)
  Sender: FDA-Public Use
  Company Number: None

PATIENT
  Age: 43 Year
  Sex: Female
  Weight: 112.5 kg

DRUGS (3)
  1. MULTI VITAMIN [Concomitant]
     Active Substance: VITAMINS
  2. ARMOUR THYROID [Suspect]
     Active Substance: THYROID, PORCINE
     Indication: GOITRE
     Dosage: ?          QUANTITY:1 TABLET(S);?
     Route: 048
     Dates: start: 20161106, end: 20170319
  3. SPRINTEC [Concomitant]
     Active Substance: ETHINYL ESTRADIOL\NORGESTIMATE

REACTIONS (9)
  - Multiple allergies [None]
  - Sensitivity of teeth [None]
  - Stress [None]
  - Nasopharyngitis [None]
  - Arthralgia [None]
  - Lacrimation increased [None]
  - Product substitution issue [None]
  - Cough [None]
  - Blepharospasm [None]

NARRATIVE: CASE EVENT DATE: 20170201
